FAERS Safety Report 15833833 (Version 1)
Quarter: 2019Q1

REPORT INFORMATION
  Report Type: Spontaneous
  Country: AU (occurrence: AU)
  Receive Date: 20190116
  Receipt Date: 20190116
  Transmission Date: 20190417
  Serious: Yes (Hospitalization)
  Sender: FDA-Public Use
  Company Number: AU-MYLANLABS-2019M1002647

PATIENT
  Sex: Male

DRUGS (2)
  1. CLOZARIL [Suspect]
     Active Substance: CLOZAPINE
     Indication: SCHIZOPHRENIA
     Dosage: 300 MILLIGRAM
     Route: 048
     Dates: start: 20060413
  2. CLOZARIL [Suspect]
     Active Substance: CLOZAPINE
     Dosage: 350 UNK
     Route: 048
     Dates: start: 201901

REACTIONS (2)
  - Hallucination [Unknown]
  - Mental impairment [Unknown]
